FAERS Safety Report 8336258 (Version 2)
Quarter: 2015Q1

REPORT INFORMATION
  Report Type: Report from Study
  Country: US (occurrence: US)
  Receive Date: 20120113
  Receipt Date: 20150220
  Transmission Date: 20150721
  Serious: Yes (Death, Hospitalization)
  Sender: FDA-Public Use
  Company Number: US-ROCHE-1028216

PATIENT
  Sex: Female

DRUGS (19)
  1. DOCUSATE SODIUM. [Concomitant]
     Active Substance: DOCUSATE SODIUM
     Route: 048
  2. VICODIN [Concomitant]
     Active Substance: ACETAMINOPHEN\HYDROCODONE BITARTRATE
     Dosage: 7.5-500 MG
     Route: 048
  3. DEXAMETHASONE. [Concomitant]
     Active Substance: DEXAMETHASONE
     Route: 042
  4. CARBOPLATIN. [Concomitant]
     Active Substance: CARBOPLATIN
     Route: 042
  5. PACLITAXEL. [Concomitant]
     Active Substance: PACLITAXEL
     Route: 042
  6. WARFARIN [Concomitant]
     Active Substance: WARFARIN
     Route: 048
  7. AVASTIN [Suspect]
     Active Substance: BEVACIZUMAB
     Indication: METASTATIC NEOPLASM
     Dosage: 15 MG/KG
     Route: 042
     Dates: start: 20090812
  8. NEULASTA [Concomitant]
     Active Substance: PEGFILGRASTIM
     Route: 065
     Dates: start: 20090813
  9. PALONOSETRON HYDROCHLORIDE [Concomitant]
     Active Substance: PALONOSETRON HYDROCHLORIDE
     Route: 042
  10. SENOKOT-S [Concomitant]
     Active Substance: DOCUSATE SODIUM\SENNOSIDES
     Dosage: 8.6-50 MG
     Route: 048
  11. TARCEVA [Suspect]
     Active Substance: ERLOTINIB HYDROCHLORIDE
     Indication: PRODUCT USED FOR UNKNOWN INDICATION
     Route: 065
     Dates: start: 20090812
  12. QUESTRAN [Concomitant]
     Active Substance: CHOLESTYRAMINE
     Dosage: TAKE 1 PACKET (4G)
     Route: 048
  13. DIPHENHYDRAMINE [Concomitant]
     Active Substance: DIPHENHYDRAMINE
     Route: 042
  14. AMBIEN [Concomitant]
     Active Substance: ZOLPIDEM TARTRATE
     Route: 048
  15. EMEND [Concomitant]
     Active Substance: APREPITANT
     Dosage: 80-125 MG
     Route: 048
  16. COUMADIN (UNITED STATES) [Concomitant]
  17. CIMETIDINE [Concomitant]
     Active Substance: CIMETIDINE
     Route: 042
  18. COMPAZINE [Concomitant]
     Active Substance: PROCHLORPERAZINE MALEATE
     Route: 048
  19. REGLAN [Concomitant]
     Active Substance: METOCLOPRAMIDE HYDROCHLORIDE
     Dosage: 1 TABLET HALF AN HR BEFORE MEALS AND AT BED TIME
     Route: 048

REACTIONS (17)
  - Escherichia sepsis [Unknown]
  - Decreased appetite [Unknown]
  - Abdominal pain [Unknown]
  - Death [Fatal]
  - Pain in extremity [Unknown]
  - Alopecia [Unknown]
  - Abdominal pain upper [Unknown]
  - Pyrexia [Unknown]
  - Ageusia [Unknown]
  - Abdominal tenderness [Unknown]
  - Urosepsis [Unknown]
  - Hypertension [Unknown]
  - Weight decreased [Unknown]
  - Back pain [Unknown]
  - Chills [Unknown]
  - Musculoskeletal pain [Unknown]
  - Ascites [Recovered/Resolved]
